FAERS Safety Report 15555443 (Version 1)
Quarter: 2018Q4

REPORT INFORMATION
  Report Type: Spontaneous
  Country: PL (occurrence: PL)
  Receive Date: 20181026
  Receipt Date: 20181026
  Transmission Date: 20190205
  Serious: Yes (Hospitalization)
  Sender: FDA-Public Use
  Company Number: PL-PFIZER INC-2018125184

PATIENT
  Age: 30 Year
  Sex: Male

DRUGS (3)
  1. CLINDAMYCIN HCL [Suspect]
     Active Substance: CLINDAMYCIN HYDROCHLORIDE
     Indication: ERYSIPELAS
     Dosage: UNK
  2. CLINDAMYCIN HCL [Suspect]
     Active Substance: CLINDAMYCIN HYDROCHLORIDE
     Indication: TINEA INFECTION
     Dosage: UNK
  3. ITRACONAZOLE. [Suspect]
     Active Substance: ITRACONAZOLE
     Indication: TINEA INFECTION
     Dosage: UNK

REACTIONS (8)
  - Rash erythematous [Recovered/Resolved]
  - Rash pustular [Recovered/Resolved]
  - Fungal infection [Recovered/Resolved]
  - Drug ineffective for unapproved indication [Recovered/Resolved]
  - Lymphadenopathy [Recovered/Resolved]
  - Disease progression [Recovered/Resolved]
  - Purulent discharge [Recovered/Resolved]
  - Lymph node pain [Recovered/Resolved]
